FAERS Safety Report 4995393-0 (Version None)
Quarter: 2006Q2

REPORT INFORMATION
  Report Type: 
  Country: None (occurrence: None)
  Receive Date: 20060503
  Receipt Date: 20060422
  Transmission Date: 20061013
  Serious: Yes (Death, Other)
  Sender: FDA-Public Use
  Company Number: 13935

PATIENT
  Age: 52 Year
  Sex: Female
  Weight: 58.5 kg

DRUGS (3)
  1. CARBOPLATIN [Suspect]
     Indication: OVARIAN CANCER METASTATIC
     Dosage: 3500 MG TOTAL
     Dates: start: 20000101
  2. CARBOPLATIN [Suspect]
     Indication: OVARIAN CANCER METASTATIC
     Dosage: 3320 MG TOTAL
     Dates: start: 20020801, end: 20021201
  3. PACLITAXEL [Suspect]
     Indication: OVARIAN CANCER METASTATIC
     Dosage: 1710 MG TOTAL
     Dates: start: 20000101

REACTIONS (12)
  - BLOOD STEM CELL TRANSPLANT FAILURE [None]
  - BONE MARROW TOXICITY [None]
  - DISEASE PROGRESSION [None]
  - DRUG EFFECT DECREASED [None]
  - ERYTHROLEUKAEMIA [None]
  - FEBRILE NEUTROPENIA [None]
  - HAEMORRHAGE INTRACRANIAL [None]
  - LEUKAEMIA [None]
  - OVARIAN EPITHELIAL CANCER RECURRENT [None]
  - PNEUMONIA [None]
  - PNEUMONITIS [None]
  - STEM CELL TRANSPLANT [None]
